FAERS Safety Report 10865520 (Version 1)
Quarter: 2015Q1

REPORT INFORMATION
  Report Type: Report from Study
  Country: US (occurrence: US)
  Receive Date: 20150224
  Receipt Date: 20150224
  Transmission Date: 20150721
  Serious: Yes (Other)
  Sender: FDA-Public Use
  Company Number: US-MYLANLABS-2014S1013758

PATIENT
  Age: 35 Year
  Sex: Male

DRUGS (6)
  1. AMNESTEEM [Suspect]
     Active Substance: ISOTRETINOIN
     Dosage: 40 MG,QD
     Route: 048
     Dates: end: 20140604
  2. AMNESTEEM [Suspect]
     Active Substance: ISOTRETINOIN
     Indication: ACNE CONGLOBATA
  3. AMNESTEEM [Suspect]
     Active Substance: ISOTRETINOIN
     Indication: OFF LABEL USE
  4. AMNESTEEM [Suspect]
     Active Substance: ISOTRETINOIN
     Dosage: 40 MG,QD
     Route: 048
     Dates: end: 20140604
  5. AMNESTEEM [Suspect]
     Active Substance: ISOTRETINOIN
     Indication: OFF LABEL USE
  6. AMNESTEEM [Suspect]
     Active Substance: ISOTRETINOIN
     Indication: ACNE CONGLOBATA

REACTIONS (2)
  - Drug ineffective for unapproved indication [Not Recovered/Not Resolved]
  - Acne conglobata [Not Recovered/Not Resolved]

NARRATIVE: CASE EVENT DATE: 201404
